FAERS Safety Report 5284203-2 (Version None)
Quarter: 2007Q2

REPORT INFORMATION
  Report Type: 
  Country: None (occurrence: None)
  Receive Date: 20070403
  Receipt Date: 20070321
  Transmission Date: 20071010
  Serious: Yes (Hospitalization)
  Sender: FDA-Public Use
  Company Number: IL-NOVOPROD-261926

PATIENT
  Age: 76 Year
  Sex: Male

DRUGS (6)
  1. NOVONORM [Suspect]
     Indication: INSULIN-REQUIRING TYPE II DIABETES MELLITUS
     Dosage: 3 MG, QD
     Route: 048
  2. INSULATARD [Suspect]
     Indication: INSULIN-REQUIRING TYPE II DIABETES MELLITUS
     Dosage: 75 IU, QD
  3. FOLIC ACID [Concomitant]
  4. TRIMETHOPRIM [Concomitant]
     Dosage: 80 MG, UNK
  5. SULPHAMETHOXAZOLE [Concomitant]
     Dosage: 400 MG, UNK
  6. ALFUZOSIN [Concomitant]

REACTIONS (2)
  - PYREXIA [None]
  - RESPIRATORY FAILURE [None]
